FAERS Safety Report 15840027 (Version 1)
Quarter: 2019Q1

REPORT INFORMATION
  Report Type: Spontaneous
  Country: US (occurrence: US)
  Receive Date: 20190117
  Receipt Date: 20190117
  Transmission Date: 20190417
  Serious: No
  Sender: FDA-Public Use
  Company Number: US-PFIZER INC-2018526882

PATIENT
  Age: 80 Year
  Sex: Female
  Weight: 50.8 kg

DRUGS (1)
  1. PREMARIN [Suspect]
     Active Substance: ESTROGENS, CONJUGATED
     Indication: HOT FLUSH
     Dosage: 0.5 MG, 1X/DAY (1 TAB ORALLY ONCE A DAY)
     Route: 048

REACTIONS (2)
  - Hot flush [Not Recovered/Not Resolved]
  - Condition aggravated [Unknown]
